FAERS Safety Report 24535025 (Version 1)
Quarter: 2024Q4

REPORT INFORMATION
  Report Type: Spontaneous
  Country: US (occurrence: None)
  Receive Date: 20241022
  Receipt Date: 20241022
  Transmission Date: 20250115
  Serious: Yes (Hospitalization)
  Sender: Public
  Company Number: None

PATIENT
  Sex: Female

DRUGS (2)
  1. GAMMAGARD LIQUID [Suspect]
     Active Substance: HUMAN IMMUNOGLOBULIN G
     Indication: Immunodeficiency common variable
     Dosage: OTHER STRENGTH : 30/300 GM/M;?FREQUENCY : MONTHLY;?
     Route: 042
     Dates: start: 201804
  2. JAKAFI [Suspect]
     Active Substance: RUXOLITINIB

REACTIONS (3)
  - Rhinovirus infection [None]
  - Pneumonia [None]
  - Bronchitis [None]
